FAERS Safety Report 7436578-3 (Version None)
Quarter: 2011Q2

REPORT INFORMATION
  Report Type: 
  Country: None (occurrence: None)
  Receive Date: 20110426
  Receipt Date: 20110414
  Transmission Date: 20111010
  Serious: Yes (Other)
  Sender: FDA-Public Use
  Company Number: TH-RANBAXY-2011RR-43678

PATIENT
  Age: 50 Year
  Sex: Female

DRUGS (3)
  1. SIMVASTATIN [Suspect]
     Dosage: 10 MG, UNK
     Dates: start: 20080101
  2. AZATHIOPRINE [Concomitant]
     Indication: MYASTHENIA GRAVIS
     Dosage: UNK
     Dates: start: 20030101
  3. SIMVASTATIN [Suspect]
     Indication: HYPERCHOLESTEROLAEMIA
     Dosage: 20 MG, UNK
     Dates: start: 20070101

REACTIONS (1)
  - MYASTHENIA GRAVIS [None]
